FAERS Safety Report 8433192-8 (Version None)
Quarter: 2012Q2

REPORT INFORMATION
  Report Type: 
  Country: None (occurrence: None)
  Receive Date: 20120613
  Receipt Date: 20120608
  Transmission Date: 20120825
  Serious: Yes (Life-Threatening, Hospitalization)
  Sender: FDA-Public Use
  Company Number: JP-GLAXOSMITHKLINE-B0798665A

PATIENT
  Sex: Female

DRUGS (5)
  1. JUVELA [Concomitant]
     Route: 065
  2. VALTREX [Suspect]
     Indication: VIITH NERVE PARALYSIS
     Dosage: 3000MG PER DAY
     Route: 048
     Dates: start: 20120409, end: 20120413
  3. VITAMIN B12 [Concomitant]
     Route: 065
     Dates: start: 20120409, end: 20120413
  4. LANSOPRAZOLE [Suspect]
     Indication: PRODUCT USED FOR UNKNOWN INDICATION
     Route: 065
     Dates: start: 20120409, end: 20120413
  5. PREDNISOLONE [Concomitant]
     Route: 065
     Dates: start: 20120409, end: 20120413

REACTIONS (11)
  - PYREXIA [None]
  - VULVAL ULCERATION [None]
  - SKIN DEGENERATIVE DISORDER [None]
  - STEVENS-JOHNSON SYNDROME [None]
  - ORAL MUCOSA EROSION [None]
  - OCULAR HYPERAEMIA [None]
  - SKIN EROSION [None]
  - EYE DISCHARGE [None]
  - ORAL MUCOSAL BLISTERING [None]
  - ERYTHEMA [None]
  - MOUTH ULCERATION [None]
